FAERS Safety Report 13668003 (Version 1)
Quarter: 2017Q2

REPORT INFORMATION
  Report Type: Spontaneous
  Country: US (occurrence: US)
  Receive Date: 20170620
  Receipt Date: 20170620
  Transmission Date: 20170830
  Serious: Yes (Disabling, Other)
  Sender: FDA-Public Use
  Company Number: US-ROCHE-800128

PATIENT
  Age: 55 Year
  Sex: Male
  Weight: 65.31 kg

DRUGS (3)
  1. KLONOPIN [Suspect]
     Active Substance: CLONAZEPAM
     Route: 048
  2. DILANTIN [Concomitant]
     Active Substance: PHENYTOIN
     Dosage: 100 TID
     Route: 048
  3. KLONOPIN [Suspect]
     Active Substance: CLONAZEPAM
     Indication: PANIC DISORDER
     Route: 048

REACTIONS (5)
  - Psychotic disorder [Not Recovered/Not Resolved]
  - Nightmare [Unknown]
  - Fear [Unknown]
  - Product quality issue [Unknown]
  - Seizure [Unknown]

NARRATIVE: CASE EVENT DATE: 20110725
